FAERS Safety Report 13275120 (Version 3)
Quarter: 2017Q1

REPORT INFORMATION
  Report Type: Spontaneous
  Country: JP (occurrence: JP)
  Receive Date: 20170227
  Receipt Date: 20170314
  Transmission Date: 20170428
  Serious: Yes (Other)
  Sender: FDA-Public Use
  Company Number: JP-UCBSA-2017007476

PATIENT
  Age: 10 Year
  Sex: Male

DRUGS (5)
  1. RIZABEN [Concomitant]
     Active Substance: TRANILAST
     Indication: EYE PRURITUS
     Dosage: 1 GTT, 2X/DAY (BID)
     Dates: start: 20170202, end: 20170209
  2. XYZAL [Suspect]
     Active Substance: LEVOCETIRIZINE DIHYDROCHLORIDE
     Indication: RHINORRHOEA
     Dosage: 2.5 MG, BID
     Route: 048
     Dates: start: 20170202, end: 20170208
  3. BIOFERMIN [Concomitant]
     Active Substance: BACILLUS SUBTILIS\LACTOBACILLUS ACIDOPHILUS\STREPTOCOCCUS FAECAIS
     Indication: PRODUCT USED FOR UNKNOWN INDICATION
     Dosage: UNK
  4. XYZAL [Suspect]
     Active Substance: LEVOCETIRIZINE DIHYDROCHLORIDE
     Indication: NASAL CONGESTION
  5. MUCODYNE [Concomitant]
     Active Substance: CARBOCYSTEINE
     Indication: RHINORRHOEA
     Dosage: 250 MG, BID
     Dates: start: 20170202, end: 20170209

REACTIONS (3)
  - Oculogyric crisis [Recovering/Resolving]
  - Torticollis [Recovering/Resolving]
  - Extrapyramidal disorder [Recovering/Resolving]

NARRATIVE: CASE EVENT DATE: 20170208
